FAERS Safety Report 14838435 (Version 2)
Quarter: 2018Q2

REPORT INFORMATION
  Report Type: Report from Study
  Country: US (occurrence: US)
  Receive Date: 20180502
  Receipt Date: 20180524
  Transmission Date: 20180711
  Serious: Yes (Death, Other)
  Sender: FDA-Public Use
  Company Number: US-ACTELION-A-US2018-171313

PATIENT
  Age: 4 Year
  Sex: Male

DRUGS (1)
  1. TRACLEER [Suspect]
     Active Substance: BOSENTAN
     Indication: PULMONARY ARTERIAL HYPERTENSION
     Dosage: 31.25 MG, QD
     Route: 048
     Dates: start: 20180102

REACTIONS (4)
  - Cardiac function disturbance postoperative [Fatal]
  - Feeding intolerance [Fatal]
  - Respiratory failure [Unknown]
  - Fluid overload [Fatal]
